FAERS Safety Report 21472939 (Version 1)
Quarter: 2022Q4

REPORT INFORMATION
  Report Type: Spontaneous
  Country: CN (occurrence: CN)
  Receive Date: 20221018
  Receipt Date: 20221018
  Transmission Date: 20230113
  Serious: Yes (Other)
  Sender: FDA-Public Use
  Company Number: CN-PFIZER INC-PV202200082445

PATIENT
  Age: 89 Year
  Sex: Male
  Weight: 47.6 kg

DRUGS (3)
  1. ZYVOX [Suspect]
     Active Substance: LINEZOLID
     Indication: Pneumonia
     Dosage: 600.000 MG, 2X/DAY
     Dates: start: 20220921, end: 20221002
  2. CEFOPERAZONE SODIUM\SULBACTAM SODIUM [Suspect]
     Active Substance: CEFOPERAZONE SODIUM\SULBACTAM SODIUM
     Indication: Pneumonia
     Dosage: 2 G, 2X/DAY
     Dates: start: 20220927, end: 20221005
  3. CANCIDAS [Concomitant]
     Active Substance: CASPOFUNGIN ACETATE
     Indication: Pneumonia
     Dosage: 50.000 MG, 1X/DAY
     Route: 041
     Dates: start: 20220927, end: 20221006

REACTIONS (4)
  - Diarrhoea [Recovered/Resolved]
  - Pseudomonas test positive [Unknown]
  - Fungal test positive [Unknown]
  - Off label use [Unknown]

NARRATIVE: CASE EVENT DATE: 20220928
